FAERS Safety Report 4407790-2 (Version None)
Quarter: 2004Q3

REPORT INFORMATION
  Report Type: 
  Country: None (occurrence: None)
  Receive Date: 20040726
  Receipt Date: 20040715
  Transmission Date: 20050211
  Serious: Yes (Other)
  Sender: FDA-Public Use
  Company Number: GB-BRISTOL-MYERS SQUIBB COMPANY-12645438

PATIENT

DRUGS (1)
  1. HYDREA [Suspect]
     Route: 048

REACTIONS (1)
  - DELUSIONAL DISORDER, PERSECUTORY TYPE [None]
